FAERS Safety Report 10214800 (Version 1)
Quarter: 2014Q2

REPORT INFORMATION
  Report Type: Spontaneous
  Country: IT (occurrence: IT)
  Receive Date: 20140603
  Receipt Date: 20140603
  Transmission Date: 20141212
  Serious: Yes (Other)
  Sender: FDA-Public Use
  Company Number: IT-ELI_LILLY_AND_COMPANY-IT201405009468

PATIENT
  Age: 43 Year
  Sex: Male

DRUGS (3)
  1. ZYPADHERA [Suspect]
     Indication: DELIRIUM TREMENS
     Dosage: 300 MG, MONTHLY (1/M)
     Route: 030
  2. ZYPADHERA [Suspect]
     Indication: ANXIETY DISORDER
  3. ANTABUSE [Concomitant]
     Indication: ALCOHOL ABUSE

REACTIONS (7)
  - Dyspnoea [Recovered/Resolved]
  - Hypertension [Recovered/Resolved]
  - Agitation [Recovered/Resolved]
  - Tachycardia [Recovered/Resolved]
  - Anxiety [Unknown]
  - Agitation [Unknown]
  - Off label use [Unknown]
